FAERS Safety Report 17212185 (Version 1)
Quarter: 2019Q4

REPORT INFORMATION
  Report Type: Report from Study
  Country: US (occurrence: US)
  Receive Date: 20191230
  Receipt Date: 20191230
  Transmission Date: 20200122
  Serious: Yes (Death)
  Sender: FDA-Public Use
  Company Number: US-ROCHE-2467959

PATIENT
  Age: 60 Year
  Sex: Male

DRUGS (20)
  1. LUCENTIS [Suspect]
     Active Substance: RANIBIZUMAB
     Indication: DIABETIC RETINOPATHY
     Route: 065
     Dates: start: 20180326, end: 20180521
  2. NOVOLOG [Concomitant]
     Active Substance: INSULIN ASPART
  3. DONEPEZIL. [Concomitant]
     Active Substance: DONEPEZIL
  4. ZANTAC [Concomitant]
     Active Substance: RANITIDINE HYDROCHLORIDE
  5. CLOPIDOGREL BISULFATE. [Concomitant]
     Active Substance: CLOPIDOGREL BISULFATE
     Route: 065
  6. IPRATROPIUM/ALBUTEROL [Concomitant]
     Active Substance: ALBUTEROL\IPRATROPIUM
  7. SILVER SULFADIAZINE. [Concomitant]
     Active Substance: SILVER SULFADIAZINE
  8. LUCENTIS [Suspect]
     Active Substance: RANIBIZUMAB
     Indication: MACULAR OEDEMA
  9. CARVEDILOL. [Concomitant]
     Active Substance: CARVEDILOL
     Route: 065
  10. ACETAMINOPHEN. [Concomitant]
     Active Substance: ACETAMINOPHEN
  11. CATAPRES-TTS [Concomitant]
     Active Substance: CLONIDINE
  12. LIPITOR [Concomitant]
     Active Substance: ATORVASTATIN CALCIUM
  13. TOUJEO [Concomitant]
     Active Substance: INSULIN GLARGINE
  14. LYRICA [Concomitant]
     Active Substance: PREGABALIN
  15. LASIX [Concomitant]
     Active Substance: FUROSEMIDE
     Route: 065
  16. MELATONIN [Concomitant]
     Active Substance: MELATONIN
  17. POTASSIUM CHLORIDE. [Concomitant]
     Active Substance: POTASSIUM CHLORIDE
  18. TYLENOL [Concomitant]
     Active Substance: ACETAMINOPHEN
  19. GLUCOSE [Concomitant]
     Active Substance: DEXTROSE
     Route: 065
  20. NORCO [Concomitant]
     Active Substance: ACETAMINOPHEN\HYDROCODONE BITARTRATE
     Route: 065

REACTIONS (1)
  - Death [Fatal]

NARRATIVE: CASE EVENT DATE: 20190220
